FAERS Safety Report 5227130-9 (Version None)
Quarter: 2007Q1

REPORT INFORMATION
  Report Type: 
  Country: None (occurrence: None)
  Receive Date: 20070201
  Receipt Date: 20070201
  Transmission Date: 20070707
  Serious: Yes (Hospitalization, Other)
  Sender: FDA-Public Use
  Company Number: None

PATIENT
  Age: 55 Year
  Sex: Female
  Weight: 70.7611 kg

DRUGS (17)
  1. ZENAPAX [Suspect]
     Indication: PROPHYLAXIS AGAINST TRANSPLANT REJECTION
     Dosage: 75 MG ONCE IV
     Route: 042
     Dates: start: 20060127, end: 20060127
  2. PROGRAM [Concomitant]
  3. ZELNORM [Concomitant]
  4. PHENERGAN [Concomitant]
  5. VANCOMYCIN HYDROCHLORIDE [Concomitant]
  6. ZOFRAN [Concomitant]
  7. DILAUDID [Concomitant]
  8. DURAGESIC [Concomitant]
  9. TUMS EX [Concomitant]
  10. JANUVIA [Concomitant]
  11. AMBIEN CR [Concomitant]
  12. LEVAQUIN [Concomitant]
  13. POTASSIUM CHLORIDE [Concomitant]
  14. REGLAN [Concomitant]
  15. SYNTHROID [Concomitant]
  16. CYMBALTA [Concomitant]
  17. NS [Concomitant]

REACTIONS (1)
  - CONVULSION [None]
